FAERS Safety Report 6460574-6 (Version None)
Quarter: 2009Q4

REPORT INFORMATION
  Report Type: 
  Country: None (occurrence: None)
  Receive Date: 20091130
  Receipt Date: 20091125
  Transmission Date: 20100525
  Serious: Yes (Death, Life-Threatening)
  Sender: FDA-Public Use
  Company Number: JP-ASTRAZENECA-2009SE16031

PATIENT
  Age: 0 Year
  Sex: Male
  Weight: 7.5 kg

DRUGS (6)
  1. MEROPEN [Suspect]
     Indication: PYREXIA
     Route: 041
  2. MEROPEN [Suspect]
     Indication: PERITONITIS
     Route: 041
  3. AMBISOME [Suspect]
     Indication: PERITONITIS
     Route: 041
  4. VANCOMYCIN [Concomitant]
  5. FUNGUARD [Concomitant]
  6. HYDROCHLORIDE [Concomitant]

REACTIONS (2)
  - MULTI-ORGAN FAILURE [None]
  - RENAL FAILURE [None]
